FAERS Safety Report 5173237-4 (Version None)
Quarter: 2006Q4

REPORT INFORMATION
  Report Type: 
  Country: None (occurrence: None)
  Receive Date: 20061214
  Receipt Date: 20060830
  Transmission Date: 20070319
  Serious: Yes (Other)
  Sender: FDA-Public Use
  Company Number: BR-AVENTIS-200614625EU

PATIENT
  Age: 45 Year
  Sex: Female

DRUGS (1)
  1. CLEXANE [Suspect]
     Indication: THROMBOPHLEBITIS
     Route: 058
     Dates: start: 20060829, end: 20060829

REACTIONS (8)
  - ANAPHYLACTOID REACTION [None]
  - CHILLS [None]
  - DRUG EXPOSURE DURING PREGNANCY [None]
  - ENDOTOXIC SHOCK [None]
  - ERYTHEMA [None]
  - HYPERTENSION [None]
  - PHARMACEUTICAL PRODUCT COMPLAINT [None]
  - THERAPEUTIC PRODUCT CONTAMINATION [None]
